FAERS Safety Report 6411054-5 (Version None)
Quarter: 2009Q4

REPORT INFORMATION
  Report Type: 
  Country: None (occurrence: None)
  Receive Date: 20091021
  Receipt Date: 20091021
  Transmission Date: 20100525
  Serious: Yes (Disabling)
  Sender: FDA-Public Use
  Company Number: None

PATIENT
  Age: 50 Year
  Sex: Female

DRUGS (1)
  1. LANTUS [Suspect]
     Dosage: 19 UNITS

REACTIONS (2)
  - BLOOD GLUCOSE DECREASED [None]
  - REFUSAL OF TREATMENT BY PATIENT [None]
